FAERS Safety Report 7058035-9 (Version None)
Quarter: 2010Q4

REPORT INFORMATION
  Report Type: 
  Country: None (occurrence: None)
  Receive Date: 20101022
  Receipt Date: 20101014
  Transmission Date: 20110411
  Serious: No
  Sender: FDA-Public Use
  Company Number: KR-JNJFOC-20101004194

PATIENT
  Age: 83 Year
  Sex: Female

DRUGS (2)
  1. DURAGESIC-100 [Suspect]
     Indication: PAIN MANAGEMENT
     Dosage: 2 PATCHES
     Route: 062
  2. DURAGESIC-100 [Suspect]
     Dosage: ONE PATCH
     Route: 062

REACTIONS (3)
  - DIZZINESS [None]
  - TREATMENT NONCOMPLIANCE [None]
  - VOMITING [None]
